FAERS Safety Report 13849732 (Version 1)
Quarter: 2017Q3

REPORT INFORMATION
  Report Type: Spontaneous
  Country: US (occurrence: US)
  Receive Date: 20170809
  Receipt Date: 20170809
  Transmission Date: 20171127
  Serious: No
  Sender: FDA-Public Use
  Company Number: US-009507513-1708USA001940

PATIENT
  Sex: Female
  Weight: 49.89 kg

DRUGS (3)
  1. NEXPLANON [Suspect]
     Active Substance: ETONOGESTREL
     Indication: CONTRACEPTION
     Dosage: ONE ROD/EVERY THREE YEARS
     Route: 059
     Dates: start: 2015
  2. WELLBUTRIN XL [Concomitant]
     Active Substance: BUPROPION HYDROCHLORIDE
     Dosage: UNK
     Dates: start: 2017
  3. CELEXA [Concomitant]
     Active Substance: CITALOPRAM HYDROBROMIDE
     Dosage: UNK
     Dates: start: 2017

REACTIONS (3)
  - Crying [Recovering/Resolving]
  - Menstruation irregular [Recovered/Resolved]
  - Emotional disorder [Recovering/Resolving]

NARRATIVE: CASE EVENT DATE: 2017
